FAERS Safety Report 19523306 (Version 1)
Quarter: 2021Q3

REPORT INFORMATION
  Report Type: Spontaneous
  Country: MY (occurrence: MY)
  Receive Date: 20210712
  Receipt Date: 20210712
  Transmission Date: 20211014
  Serious: Yes (Other)
  Sender: FDA-Public Use
  Company Number: MY-PFIZER INC-2021808604

PATIENT
  Age: 47 Year
  Sex: Male

DRUGS (1)
  1. DILANTIN [Suspect]
     Active Substance: PHENYTOIN
     Indication: ARTERIOVENOUS MALFORMATION
     Dosage: 300 MG, 1X/DAY
     Route: 048

REACTIONS (2)
  - Transaminases increased [Recovering/Resolving]
  - Rash maculo-papular [Recovering/Resolving]
